FAERS Safety Report 12398671 (Version 1)
Quarter: 2016Q2

REPORT INFORMATION
  Report Type: Spontaneous
  Country: SE (occurrence: SE)
  Receive Date: 20160524
  Receipt Date: 20160524
  Transmission Date: 20160815
  Serious: Yes (Other)
  Sender: FDA-Public Use
  Company Number: SE-PFIZER INC-2016269565

PATIENT
  Age: 66 Year
  Sex: Male

DRUGS (1)
  1. CHAMPIX [Suspect]
     Active Substance: VARENICLINE TARTRATE
     Indication: SMOKING CESSATION THERAPY
     Dosage: 0.5 MG, ESCALATION ACCORDING TO THE SPC
     Route: 048
     Dates: start: 20160428, end: 20160503

REACTIONS (17)
  - Dizziness [Recovering/Resolving]
  - Nausea [Recovering/Resolving]
  - Tremor [Recovering/Resolving]
  - Influenza like illness [Recovering/Resolving]
  - Mental impairment [Recovering/Resolving]
  - Eye inflammation [Recovering/Resolving]
  - Diarrhoea [Recovering/Resolving]
  - Malaise [Recovering/Resolving]
  - Pollakiuria [Recovering/Resolving]
  - Tinnitus [Recovering/Resolving]
  - Hot flush [Recovering/Resolving]
  - Coordination abnormal [Recovering/Resolving]
  - Decreased appetite [Recovering/Resolving]
  - Lacrimation increased [Recovering/Resolving]
  - Fatigue [Recovering/Resolving]
  - Insomnia [Recovering/Resolving]
  - Night sweats [Recovering/Resolving]

NARRATIVE: CASE EVENT DATE: 2016
